FAERS Safety Report 5053141-2 (Version None)
Quarter: 2006Q3

REPORT INFORMATION
  Report Type: 
  Country: None (occurrence: None)
  Receive Date: 20060712
  Receipt Date: 20060621
  Transmission Date: 20061208
  Serious: Yes (Death, Other)
  Sender: FDA-Public Use
  Company Number: US200606004659

PATIENT
  Age: 13 Year
  Sex: Male

DRUGS (3)
  1. PROZAC [Suspect]
     Indication: DEPRESSION
     Dosage: 20 MG, DAILY (1/D), ORAL
     Route: 048
     Dates: start: 20040101, end: 20060301
  2. ELSPAR [Concomitant]
  3. CLONIDINE [Concomitant]

REACTIONS (4)
  - MYOCARDITIS BACTERIAL [None]
  - PHARYNGITIS STREPTOCOCCAL [None]
  - SUDDEN DEATH [None]
  - THERAPY NON-RESPONDER [None]
